FAERS Safety Report 18055338 (Version 7)
Quarter: 2021Q4

REPORT INFORMATION
  Report Type: Report from Study
  Country: CA (occurrence: CA)
  Receive Date: 20200722
  Receipt Date: 20211113
  Transmission Date: 20220304
  Serious: Yes (Other)
  Sender: FDA-Public Use
  Company Number: None

PATIENT
  Age: 77 Year
  Sex: Male

DRUGS (4)
  1. COSENTYX [Suspect]
     Active Substance: SECUKINUMAB
     Indication: Ankylosing spondylitis
     Dosage: 300 MG, QMO
     Route: 058
     Dates: start: 20200714
  2. COSENTYX [Suspect]
     Active Substance: SECUKINUMAB
     Indication: Psoriatic arthropathy
     Dosage: 150 MG, QMO
     Route: 058
  3. COSENTYX [Suspect]
     Active Substance: SECUKINUMAB
     Dosage: 150 MG, Q4W
     Route: 058
     Dates: start: 20200623, end: 20201214
  4. CIMZIA [Concomitant]
     Active Substance: CERTOLIZUMAB PEGOL
     Indication: Product used for unknown indication
     Dosage: UNK
     Route: 058

REACTIONS (23)
  - Eye haemorrhage [Recovering/Resolving]
  - Eye pruritus [Unknown]
  - Vision blurred [Unknown]
  - Urinary retention [Not Recovered/Not Resolved]
  - Synovitis [Unknown]
  - Lung neoplasm malignant [Unknown]
  - Infarction [Unknown]
  - Cataract [Unknown]
  - Psoriatic arthropathy [Unknown]
  - Ankylosing spondylitis [Unknown]
  - Anxiety [Unknown]
  - Fluid retention [Not Recovered/Not Resolved]
  - Finger deformity [Unknown]
  - Urinary incontinence [Not Recovered/Not Resolved]
  - Sleep disorder [Unknown]
  - Pain [Unknown]
  - Lip injury [Unknown]
  - Dysphagia [Unknown]
  - Dyspnoea [Unknown]
  - Oral herpes [Unknown]
  - Peripheral swelling [Unknown]
  - Pain in extremity [Unknown]
  - Therapeutic product effect incomplete [Unknown]

NARRATIVE: CASE EVENT DATE: 20200718
